FAERS Safety Report 9834816 (Version 1)
Quarter: 2014Q1

REPORT INFORMATION
  Report Type: Spontaneous
  Country: US (occurrence: US)
  Receive Date: 20140122
  Receipt Date: 20140122
  Transmission Date: 20141002
  Serious: No
  Sender: FDA-Public Use
  Company Number: US-BAUSCH-BL-2013-002581

PATIENT
  Age: 63 Year
  Sex: Female

DRUGS (3)
  1. ALAWAY (KETOTIFEN FUMARATE OPHTHALMIC SOLUTION) [Suspect]
     Indication: EYE ALLERGY
     Dosage: 1 DROP IN EACH EYE; ONCE DAILY; OPHTHALMIC
     Route: 047
     Dates: start: 2012
  2. CETIRIZINE HYDROCHLORIDE [Concomitant]
     Indication: HYPERSENSITIVITY
  3. LOSARTAN [Concomitant]
     Indication: HYPERTENSION

REACTIONS (1)
  - Ocular hyperaemia [Not Recovered/Not Resolved]
